FAERS Safety Report 15307591 (Version 1)
Quarter: 2018Q3

REPORT INFORMATION
  Report Type: Spontaneous
  Country: ZA (occurrence: ZA)
  Receive Date: 20180822
  Receipt Date: 20180822
  Transmission Date: 20181010
  Serious: Yes (Other)
  Sender: FDA-Public Use
  Company Number: ZA-JNJFOC-20180821539

PATIENT
  Sex: Male
  Weight: 91 kg

DRUGS (4)
  1. XARELTO [Suspect]
     Active Substance: RIVAROXABAN
     Indication: DEEP VEIN THROMBOSIS
     Route: 048
     Dates: start: 2017
  2. SUSTANON [Concomitant]
     Active Substance: TESTOSTERONE
     Indication: KLINEFELTER^S SYNDROME
     Dosage: EVERY 3 WEEKS
     Route: 065
     Dates: start: 198503, end: 2008
  3. NEBIDO [Suspect]
     Active Substance: TESTOSTERONE UNDECANOATE
     Indication: KLINEFELTER^S SYNDROME
     Dosage: EVERY 10 WEEKS OR SO
     Route: 065
     Dates: start: 2008, end: 20180119
  4. ZINC. [Suspect]
     Active Substance: ZINC
     Indication: PRODUCT USED FOR UNKNOWN INDICATION
     Route: 065

REACTIONS (9)
  - Agitation [Unknown]
  - Haemoglobin increased [Unknown]
  - Deep vein thrombosis [Unknown]
  - Depression [Unknown]
  - Oxygen saturation decreased [Unknown]
  - Erectile dysfunction [Not Recovered/Not Resolved]
  - Weight increased [Unknown]
  - Hypercoagulation [Unknown]
  - Aggression [Unknown]

NARRATIVE: CASE EVENT DATE: 1997
